FAERS Safety Report 10296256 (Version 3)
Quarter: 2015Q1

REPORT INFORMATION
  Report Type: Report from Study
  Country: JP (occurrence: JP)
  Receive Date: 20140711
  Receipt Date: 20150303
  Transmission Date: 20150720
  Serious: Yes (Death, Hospitalization)
  Sender: FDA-Public Use
  Company Number: JP-PFIZER INC-2014188656

PATIENT
  Age: 52 Year
  Sex: Male
  Weight: 74 kg

DRUGS (23)
  1. DECADRON [Concomitant]
     Active Substance: DEXAMETHASONE
     Dosage: 4 MG, 2X/DAY
     Route: 048
     Dates: start: 20140125, end: 20140128
  2. GLYCEOL [Concomitant]
     Active Substance: GLYCERIN
     Dosage: 200 ML, 1X/DAY
     Dates: start: 20140127, end: 20140131
  3. NOVAMIN [Concomitant]
     Active Substance: PROCHLORPERAZINE MALEATE
     Dosage: 5 MG, 1X/DAY
     Route: 048
     Dates: start: 20140204, end: 20140204
  4. PANTOSIN [Concomitant]
     Active Substance: PANTETHINE
     Dosage: 100 MG X 1-3/DAY
     Route: 048
     Dates: start: 20140121, end: 20140204
  5. MUCOSTA [Concomitant]
     Active Substance: REBAMIPIDE
     Dosage: 100 MG, 3X/DAY
     Route: 048
     Dates: end: 20140130
  6. DECADRON [Concomitant]
     Active Substance: DEXAMETHASONE
     Dosage: 3.5 MG, 2X/DAY
     Route: 048
     Dates: start: 20140129, end: 20140131
  7. NEUROVITAN [Concomitant]
     Active Substance: VITAMINS
     Dosage: 1 DF, 2X/DAY
     Route: 048
     Dates: end: 20140203
  8. DECADRON [Concomitant]
     Active Substance: DEXAMETHASONE
     Dosage: 3 MG, 2X/DAY
     Route: 048
     Dates: start: 20140201, end: 20140204
  9. RESMIT [Concomitant]
     Dosage: 5 MG, 2X/DAY
     Route: 048
     Dates: end: 20140204
  10. GLYCERIN. [Concomitant]
     Active Substance: GLYCERIN
     Dosage: ONCE DAILY
     Route: 054
     Dates: start: 20140204, end: 20140204
  11. MICARDIS [Concomitant]
     Active Substance: TELMISARTAN
     Dosage: 40 MG, 1X/DAY
     Route: 048
     Dates: end: 20140203
  12. XALKORI [Suspect]
     Active Substance: CRIZOTINIB
     Indication: NON-SMALL CELL LUNG CANCER
     Dosage: 250 MG, 2X/DAY
     Route: 048
     Dates: start: 20140121, end: 20140204
  13. CELECOX [Concomitant]
     Active Substance: CELECOXIB
     Dosage: 200 MG, 2X/DAY
     Route: 048
     Dates: start: 20140130, end: 20140215
  14. VOLTAREN [Concomitant]
     Active Substance: DICLOFENAC SODIUM
     Dosage: 37.5 MG, 2X/DAY
     Route: 048
     Dates: end: 20140130
  15. NOVAMIN [Concomitant]
     Active Substance: PROCHLORPERAZINE MALEATE
     Dosage: 5 MG, 2X/DAY
     Route: 048
     Dates: end: 20140202
  16. GLYCERIN. [Concomitant]
     Active Substance: GLYCERIN
     Dosage: ONCE DAILY
     Route: 054
     Dates: start: 20140129, end: 20140129
  17. MAG-LAX [Concomitant]
     Active Substance: MAGNESIUM HYDROXIDE\PARAFFIN
     Dosage: 330 MG X 1-3/DAY
     Route: 048
     Dates: start: 20140121, end: 20140211
  18. SENNA [Concomitant]
     Active Substance: SENNA LEAF\SENNOSIDES\SENNOSIDES A AND B
     Dosage: 1 G, 1X/DAY
     Route: 048
     Dates: start: 20140121, end: 20140131
  19. GLYCEOL [Concomitant]
     Active Substance: GLYCERIN
     Dosage: 200 ML, 1X/DAY
     Dates: start: 20140203, end: 20140203
  20. MS CONTIN [Concomitant]
     Active Substance: MORPHINE SULFATE
     Dosage: 20 MG, 2X/DAY
     Route: 048
     Dates: end: 20140206
  21. CYTOTEC [Concomitant]
     Active Substance: MISOPROSTOL
     Dosage: 200 ?G, 2X/DAY
     Route: 048
     Dates: end: 20140215
  22. CONIEL [Concomitant]
     Active Substance: BENIDIPINE HYDROCHLORIDE
     Dosage: 4 MG, 1X/DAY
     Route: 048
     Dates: end: 20140203
  23. GLYCERIN. [Concomitant]
     Active Substance: GLYCERIN
     Dosage: ONCE DAILY
     Route: 054
     Dates: start: 20140201, end: 20140201

REACTIONS (5)
  - Abdominal pain upper [Not Recovered/Not Resolved]
  - Nausea [Not Recovered/Not Resolved]
  - Non-small cell lung cancer [Fatal]
  - Disease progression [Fatal]
  - Decreased appetite [Not Recovered/Not Resolved]

NARRATIVE: CASE EVENT DATE: 20140129
